FAERS Safety Report 18643835 (Version 1)
Quarter: 2020Q4

REPORT INFORMATION
  Report Type: Report from Study
  Country: US (occurrence: US)
  Receive Date: 20201221
  Receipt Date: 20201221
  Transmission Date: 20210114
  Serious: Yes (Hospitalization, Other)
  Sender: FDA-Public Use
  Company Number: US-JNJFOC-20201226589

PATIENT
  Age: 28 Year
  Sex: Male

DRUGS (10)
  1. SPRAVATO [Suspect]
     Active Substance: ESKETAMINE
     Dates: start: 20200818, end: 20200818
  2. SPRAVATO [Suspect]
     Active Substance: ESKETAMINE
     Dates: start: 20201201, end: 20201201
  3. SPRAVATO [Suspect]
     Active Substance: ESKETAMINE
     Dosage: 42MG, 10 TOTAL DOSES
     Dates: start: 20200820, end: 20201112
  4. SPRAVATO [Suspect]
     Active Substance: ESKETAMINE
     Dates: start: 20200206, end: 20200206
  5. SPRAVATO [Suspect]
     Active Substance: ESKETAMINE
     Dates: start: 20200210, end: 20200210
  6. SPRAVATO [Suspect]
     Active Substance: ESKETAMINE
     Dates: start: 20201119, end: 20201119
  7. SPRAVATO [Suspect]
     Active Substance: ESKETAMINE
     Dosage: 42MG, 7 TOTAL DOSES
     Dates: start: 20200218, end: 20200415
  8. SPRAVATO [Suspect]
     Active Substance: ESKETAMINE
     Dates: start: 20201124, end: 20201124
  9. SPRAVATO [Suspect]
     Active Substance: ESKETAMINE
     Indication: DEPRESSION
     Dates: start: 20200130, end: 20200130
  10. SPRAVATO [Suspect]
     Active Substance: ESKETAMINE
     Dates: start: 20200203, end: 20200203

REACTIONS (1)
  - Generalised tonic-clonic seizure [Recovered/Resolved]

NARRATIVE: CASE EVENT DATE: 20201201
